FAERS Safety Report 25445730 (Version 2)
Quarter: 2025Q3

REPORT INFORMATION
  Report Type: Report from Study
  Country: US (occurrence: US)
  Receive Date: 20250617
  Receipt Date: 20250809
  Transmission Date: 20251020
  Serious: Yes (Hospitalization)
  Sender: ALEXION PHARMACEUTICALS
  Company Number: US-ASTRAZENECA-202506USA011031US

PATIENT
  Sex: Female

DRUGS (1)
  1. OLAPARIB [Suspect]
     Active Substance: OLAPARIB
     Indication: Nervous system neoplasm benign
     Dosage: 100 MILLIGRAM, BID
     Dates: start: 202410

REACTIONS (2)
  - Diarrhoea [Unknown]
  - Dehydration [Unknown]
